FAERS Safety Report 4311252-0 (Version None)
Quarter: 2004Q1

REPORT INFORMATION
  Report Type: 
  Country: None (occurrence: None)
  Receive Date: 20040302
  Receipt Date: 20040224
  Transmission Date: 20041129
  Serious: Yes (Other)
  Sender: FDA-Public Use
  Company Number: US-SHR-04-020787

PATIENT
  Age: 38 Year
  Sex: Female
  Weight: 84.8 kg

DRUGS (1)
  1. CLIMARA [Suspect]
     Dosage: 0.1 MG, CONT, TRANSDERMAL
     Route: 062

REACTIONS (2)
  - PANCREATITIS [None]
  - VAGINAL MYCOSIS [None]
